FAERS Safety Report 15715260 (Version 1)
Quarter: 2018Q4

REPORT INFORMATION
  Report Type: Report from Study
  Country: ES (occurrence: ES)
  Receive Date: 20181212
  Receipt Date: 20181212
  Transmission Date: 20190205
  Serious: Yes (Other)
  Sender: FDA-Public Use
  Company Number: ES-PFIZER INC-2018505682

PATIENT
  Age: 7 Year
  Sex: Female
  Weight: 36.3 kg

DRUGS (13)
  1. ERWINAZE [Suspect]
     Active Substance: ASPARAGINASE ERWINIA CHRYSANTHEMI
     Indication: ACUTE LYMPHOCYTIC LEUKAEMIA
     Dosage: 22.4 KIU, 1X/DAY
     Route: 030
     Dates: start: 20180203, end: 20180203
  2. DEXAMETHASONE. [Suspect]
     Active Substance: DEXAMETHASONE
     Indication: ACUTE LYMPHOCYTIC LEUKAEMIA
     Dosage: 11 MG, 2X/DAY (EVERY 12 HOURS)
     Route: 042
     Dates: start: 20180129, end: 20180203
  3. PIPERACILLIN/TAZOBACTAM [Concomitant]
     Active Substance: PIPERACILLIN SODIUM\TAZOBACTAM SODIUM
     Dosage: 3000 MG, 4X/DAY (EVERY 6 HOURS)
     Route: 042
     Dates: start: 20180207, end: 20180218
  4. FUROSEMIDE. [Concomitant]
     Active Substance: FUROSEMIDE
     Dosage: 2 MG, 4X/DAY (EVERY 6 HOURS)
     Route: 042
     Dates: start: 20180205, end: 20180213
  5. OMEPRAZOLE. [Concomitant]
     Active Substance: OMEPRAZOLE
     Indication: PROPHYLAXIS
     Dosage: 20 MG, 1X/DAY
     Route: 042
     Dates: start: 20180205, end: 20180214
  6. HYDROCORTISONE. [Concomitant]
     Active Substance: HYDROCORTISONE
     Indication: PROPHYLAXIS
     Dosage: 4 MG, 3X/DAY (EVERY 8 HOURS)
     Route: 048
     Dates: start: 20180205, end: 20180223
  7. AMBISOME [Concomitant]
     Active Substance: AMPHOTERICIN B
     Dosage: 35 MG, 1X/DAY (EVERY 24 HOURS)
     Route: 042
     Dates: start: 20180205, end: 20180222
  8. VANCOMYCINE [VANCOMYCIN] [Concomitant]
     Dosage: 400 MG, 4X/DAY (EVERY 6 WEEKS)
     Route: 042
     Dates: start: 20180205, end: 20180207
  9. SEPTRIN [Concomitant]
     Active Substance: SULFAMETHOXAZOLE\TRIMETHOPRIM
     Dosage: 1 DF, 2X/DAY (EVERY 12 HOURS)
     Route: 048
     Dates: start: 20180205, end: 20180222
  10. MEROPENEM. [Concomitant]
     Active Substance: MEROPENEM
     Dosage: 1400 MG, 3X/DAY EVERY 8 HOURS)
     Route: 042
     Dates: start: 20180205, end: 20180207
  11. CYTARABINE. [Suspect]
     Active Substance: CYTARABINE
     Indication: ACUTE LYMPHOCYTIC LEUKAEMIA
     Route: 042
     Dates: start: 20180129, end: 20180130
  12. ETOPOSIDE. [Suspect]
     Active Substance: ETOPOSIDE
     Indication: ACUTE LYMPHOCYTIC LEUKAEMIA
     Dosage: 50 MG, 2X/DAY (EVERY 12 HOURS)
     Route: 048
     Dates: start: 20180131, end: 20180202
  13. ACYCLOVIR [ACICLOVIR] [Concomitant]
     Active Substance: ACYCLOVIR
     Indication: PROPHYLAXIS
     Dosage: 280 MG, 3X/DAY (EVERY 8 HOURS)
     Route: 048
     Dates: start: 20180205, end: 20180222

REACTIONS (1)
  - Renal tubular dysfunction [Recovered/Resolved]

NARRATIVE: CASE EVENT DATE: 20180222
